FAERS Safety Report 17510056 (Version 1)
Quarter: 2020Q1

REPORT INFORMATION
  Report Type: Spontaneous
  Country: US (occurrence: US)
  Receive Date: 20200306
  Receipt Date: 20200306
  Transmission Date: 20200409
  Serious: Yes (Other)
  Sender: FDA-Public Use
  Company Number: US-PFIZER INC-2020035159

PATIENT
  Age: 75 Year
  Sex: Male

DRUGS (9)
  1. IMBRUVICA [Concomitant]
     Active Substance: IBRUTINIB
     Dosage: 420 MG, UNK
     Route: 048
     Dates: start: 20191106
  2. METRONIDAZOLE. [Concomitant]
     Active Substance: METRONIDAZOLE
     Dosage: 500 MG, 3X/DAY (FOR 10 DAY(S)
     Route: 048
  3. CLARITHROMYCIN. [Concomitant]
     Active Substance: CLARITHROMYCIN
     Dosage: 500 MG, 2X/DAY (EVERY 12 HOURS FOR 1 DAY(S)
     Route: 048
  4. LISINOPRIL. [Concomitant]
     Active Substance: LISINOPRIL
     Dosage: 10 MG, DAILY
     Route: 048
  5. OMEPRAZOLE. [Concomitant]
     Active Substance: OMEPRAZOLE
     Dosage: 80 MG, DAILY
     Route: 048
  6. RETACRIT [Suspect]
     Active Substance: EPOETIN ALFA-EPBX
     Indication: NEPHROGENIC ANAEMIA
     Dosage: 10000 IU/ML, UNK
  7. COLLAGEN ULTRA [Concomitant]
     Dosage: 2 DF, 3X/DAY
     Route: 048
  8. AMOXICILLIN. [Concomitant]
     Active Substance: AMOXICILLIN
     Dosage: 500 MG, 2X/DAY
     Route: 048
  9. RETACRIT [Suspect]
     Active Substance: EPOETIN ALFA-EPBX
     Dosage: 8000 IU, EVERY 2 WEEKS (28 DAYS)/[Q14 D]
     Route: 058
     Dates: start: 20200120

REACTIONS (2)
  - Deep vein thrombosis [Recovered/Resolved]
  - Off label use [Unknown]
